FAERS Safety Report 7505433-2 (Version None)
Quarter: 2011Q2

REPORT INFORMATION
  Report Type: 
  Country: None (occurrence: None)
  Receive Date: 20110526
  Receipt Date: 20110512
  Transmission Date: 20111010
  Serious: Yes (Other)
  Sender: FDA-Public Use
  Company Number: PHHY2011RO40397

PATIENT
  Sex: Male

DRUGS (3)
  1. CORTICOSTEROIDS [Concomitant]
  2. ZOMETA [Suspect]
     Dosage: 4 MG, QMO
  3. CHEMOTHERAPEUTICS NOS [Concomitant]
     Dosage: UNK

REACTIONS (8)
  - SWELLING [None]
  - EXPOSED BONE IN JAW [None]
  - OSTEONECROSIS OF JAW [None]
  - PAIN [None]
  - ORAL MUCOSAL ERYTHEMA [None]
  - SOFT TISSUE INFECTION [None]
  - OSTEOMYELITIS [None]
  - ORAL DISORDER [None]
